FAERS Safety Report 6444166-0 (Version None)
Quarter: 2009Q4

REPORT INFORMATION
  Report Type: 
  Country: None (occurrence: None)
  Receive Date: 20091118
  Receipt Date: 20091113
  Transmission Date: 20100525
  Serious: Yes (Other)
  Sender: FDA-Public Use
  Company Number: US-ALLERGAN-0915803US

PATIENT

DRUGS (3)
  1. ACULAR LS [Suspect]
     Indication: DRUG USE FOR UNKNOWN INDICATION
  2. ZYMAR [Concomitant]
  3. PRED FORTE [Concomitant]

REACTIONS (1)
  - ULCERATIVE KERATITIS [None]
